FAERS Safety Report 14648058 (Version 1)
Quarter: 2018Q1

REPORT INFORMATION
  Report Type: Spontaneous
  Country: US (occurrence: US)
  Receive Date: 20180315
  Receipt Date: 20180315
  Transmission Date: 20180509
  Serious: Yes (Other)
  Sender: FDA-Public Use
  Company Number: None

PATIENT
  Age: 59 Year
  Sex: Female

DRUGS (8)
  1. DOXIL [Suspect]
     Active Substance: DOXORUBICIN HYDROCHLORIDE
     Dosage: 50 MG/M2 IV DAY 2 CYCLE 1: 03-FEB-2018
     Route: 042
     Dates: start: 20180203
  2. TEMOZOLOMIDE. [Suspect]
     Active Substance: TEMOZOLOMIDE
     Dosage: 100 MG/M2 IV DAYS 205 (CYCLE 1: 03-FEB-2018 TO 06-FEB-2018
     Route: 042
     Dates: start: 20180203, end: 20180206
  3. ETOPOSIDE. [Suspect]
     Active Substance: ETOPOSIDE
     Dosage: 50MG/M2 IV DAYS 2-5 (CYCLE 1: 03-FEB-2018 TO 06-FEB-2018
     Route: 042
     Dates: start: 20180203, end: 20180206
  4. DEXAMETHASONE. [Suspect]
     Active Substance: DEXAMETHASONE
     Dosage: 10 MG/M2 DAYS 1-5 CYCLE 1: 02-FEB-2018 TO 06-FEB-2018
     Dates: start: 20180202, end: 20180206
  5. CYTARABINE. [Suspect]
     Active Substance: CYTARABINE
     Indication: CENTRAL NERVOUS SYSTEM LYMPHOMA
     Dosage: 70 MG INTRATHECAL CYCLE 2 ONLY: 26-FEB-2018
     Route: 037
     Dates: start: 20180226
  6. IBRUTINIB [Suspect]
     Active Substance: IBRUTINIB
     Dosage: 840 MG DAILY PO FROM DAY -2 THOUGH CYCLE 2 DAY 5 (31-JAN-2018 TO 26-FEB-2018)
     Route: 048
     Dates: start: 20180131, end: 20180226
  7. RITUXIMAB. [Suspect]
     Active Substance: RITUXIMAB
     Dosage: 375 MG/M2 IV ON DAYS 1 AND 2 CYCLE 1: 02-FEB-2018 AND 03-FEB-2018
     Route: 042
     Dates: start: 20180202, end: 20180203
  8. NEULASTA [Concomitant]
     Active Substance: PEGFILGRASTIM
     Route: 058

REACTIONS (3)
  - Pulmonary mass [None]
  - Central nervous system lesion [None]
  - Aspergillus infection [None]
